FAERS Safety Report 8920663 (Version 2)
Quarter: 2016Q4

REPORT INFORMATION
  Report Type: Report from Study
  Country: FR (occurrence: FR)
  Receive Date: 20121121
  Receipt Date: 20161017
  Transmission Date: 20170207
  Serious: Yes (Hospitalization)
  Sender: FDA-Public Use
  Company Number: FR-ROCHE-CID000000002221969

PATIENT
  Age: 43 Year
  Sex: Male
  Weight: 64 kg

DRUGS (8)
  1. VISMODEGIB [Suspect]
     Active Substance: VISMODEGIB
     Dosage: COURSE 2
     Route: 048
     Dates: start: 20120215
  2. VISMODEGIB [Suspect]
     Active Substance: VISMODEGIB
     Dosage: COURSE 7?24/JUL/2012: INTERRUPTED
     Route: 048
     Dates: start: 20120706
  3. VISMODEGIB [Suspect]
     Active Substance: VISMODEGIB
     Route: 048
     Dates: start: 20120806
  4. VISMODEGIB [Suspect]
     Active Substance: VISMODEGIB
     Dosage: COURSE 5
     Route: 048
     Dates: start: 20120511
  5. VISMODEGIB [Suspect]
     Active Substance: VISMODEGIB
     Dosage: COURSE 6
     Route: 048
     Dates: start: 20120608
  6. VISMODEGIB [Suspect]
     Active Substance: VISMODEGIB
     Indication: CHONDROSARCOMA
     Dosage: COURSE 1
     Route: 048
     Dates: start: 20120119
  7. VISMODEGIB [Suspect]
     Active Substance: VISMODEGIB
     Dosage: COURSE 9
     Route: 048
     Dates: start: 20120831
  8. VISMODEGIB [Suspect]
     Active Substance: VISMODEGIB
     Dosage: COURSE 30, 12/JUN/2014: OFF STUDY
     Route: 048
     Dates: start: 20140505

REACTIONS (1)
  - Pulmonary embolism [Recovered/Resolved]

NARRATIVE: CASE EVENT DATE: 20120717
